FAERS Safety Report 6159811-7 (Version None)
Quarter: 2009Q2

REPORT INFORMATION
  Report Type: 
  Country: None (occurrence: None)
  Receive Date: 20090420
  Receipt Date: 20090407
  Transmission Date: 20091009
  Serious: Yes (Hospitalization)
  Sender: FDA-Public Use
  Company Number: GB-BIOGENIDEC-2009BI008904

PATIENT
  Sex: Female

DRUGS (21)
  1. TYSABRI [Suspect]
     Indication: MULTIPLE SCLEROSIS
     Dates: start: 20080610
  2. CYCLIZINE [Concomitant]
  3. BUTRANS PATCH [Concomitant]
  4. PROPRANOLOL [Concomitant]
  5. TRAMADOL HCL [Concomitant]
  6. TEMAZEPAM [Concomitant]
     Route: 048
  7. TROSPIUM [Concomitant]
  8. SUCOMET SYRUP [Concomitant]
  9. CITALOPRAM HYDROBROMIDE [Concomitant]
  10. BACLOFEN [Concomitant]
  11. MODAFINIL [Concomitant]
  12. PREGABALIN [Concomitant]
  13. OMACOR [Concomitant]
  14. LACTULOSE [Concomitant]
     Route: 048
  15. PREMARIN [Concomitant]
  16. CARBAMAZEPINE [Concomitant]
  17. CLONAZEPAM [Concomitant]
  18. SUMATRIPTAN SUCCINATE [Concomitant]
  19. DICLOFENAC SODIUM [Concomitant]
  20. NITROFURANTOIN [Concomitant]
  21. ROSUVASTATIN CALCIUM [Concomitant]

REACTIONS (1)
  - FOOD POISONING [None]
